FAERS Safety Report 6270424-9 (Version None)
Quarter: 2009Q3

REPORT INFORMATION
  Report Type: 
  Country: None (occurrence: None)
  Receive Date: 20090716
  Receipt Date: 20090703
  Transmission Date: 20100115
  Serious: Yes (Other)
  Sender: FDA-Public Use
  Company Number: PHHY2009BR28486

PATIENT
  Age: 51 Year
  Sex: Male
  Weight: 73 kg

DRUGS (3)
  1. VOLTAREN [Suspect]
     Indication: INFLAMMATION
     Dosage: 50 MG, BID
     Route: 054
     Dates: start: 20090601
  2. VOLTAREN [Suspect]
     Dosage: 50 MG, BID
     Route: 054
  3. RADIOTHERAPY [Concomitant]
     Indication: NEOPLASM MALIGNANT

REACTIONS (1)
  - INJURY [None]
